FAERS Safety Report 15165836 (Version 2)
Quarter: 2018Q3

REPORT INFORMATION
  Report Type: Spontaneous
  Country: DK (occurrence: DK)
  Receive Date: 20180719
  Receipt Date: 20180723
  Transmission Date: 20181010
  Serious: Yes (Death, Life-Threatening, Hospitalization)
  Sender: FDA-Public Use
  Company Number: DK-009507513-1807DNK005960

PATIENT
  Age: 63 Year
  Sex: Male
  Weight: 84 kg

DRUGS (18)
  1. KEYTRUDA [Suspect]
     Active Substance: PEMBROLIZUMAB
     Indication: NON-SMALL CELL LUNG CANCER RECURRENT
     Dosage: DOSAGE: 178 MG. STRENGTH: 25 MG/ML
     Route: 042
     Dates: start: 20171230, end: 20180426
  2. DIPROSALIC [Concomitant]
     Active Substance: BETAMETHASONE DIPROPIONATE
     Indication: SKIN EXFOLIATION
     Dosage: STRENGHT: 0,5+30 MG/G. ONE (1) APPLICATION AS NEEDED, NO MORE THAN ONCE A DAY
     Route: 003
     Dates: start: 20180531
  3. DERMOVAT [Concomitant]
     Active Substance: CLOBETASOL
     Indication: PSORIASIS
     Dosage: STRENGTH: 0.5MG/G.DOSAGE: ONE (1) APPLICATION AS NEEDED, NO MORE THAN ONCE A DAY
     Route: 003
     Dates: start: 20180530
  4. TRADOLAN RETARD [Concomitant]
     Active Substance: TRAMADOL HYDROCHLORIDE
     Indication: PAIN
     Dosage: STRENGHT: 100 MG
     Route: 048
     Dates: start: 2017
  5. LOSARTAN POTASSIUM. [Concomitant]
     Active Substance: LOSARTAN POTASSIUM
     Indication: HYPERTENSION
     Dosage: STRENGTH: 50 MG
     Route: 048
     Dates: start: 2015
  6. AMLODIPIN TEVA (AMLODIPINE BESYLATE) [Concomitant]
     Indication: HYPERTENSION
     Dosage: STRENGTH: 5 MG
     Route: 048
  7. KALEORID [Concomitant]
     Active Substance: POTASSIUM CHLORIDE
     Indication: BLOOD POTASSIUM
     Dosage: STRENGTH: 750 MG
     Route: 048
  8. LOCOID [Concomitant]
     Active Substance: HYDROCORTISONE BUTYRATE
     Indication: PSORIASIS
     Dosage: STRENGTH: 0.1 %. DOSAGE: ONE (1) APPLICATION AS NEEDED, NO MORE THAN ONCE A DAY
     Route: 003
     Dates: start: 20180523
  9. PEVISONE [Concomitant]
     Active Substance: ECONAZOLE
     Indication: PSORIASIS
     Dosage: STRENGTH: 10+1 MG/G. ONE (1) APPLICATION IN THE MORNING
     Route: 003
     Dates: start: 20180529
  10. IMOCLONE [Concomitant]
     Active Substance: ZOPICLONE
     Indication: SLEEP DEFICIT
     Dosage: STRENGTH: 7.5 MG. DOSAGE: ONE (1) TABLET AS NEEDED
     Route: 048
     Dates: start: 20180531
  11. PAMOL [Concomitant]
     Active Substance: ACETAMINOPHEN
     Indication: PAIN
     Dosage: STRENGTH: 500 MG
     Route: 048
     Dates: start: 2016
  12. SPIRIVA RESPIMAT [Concomitant]
     Active Substance: TIOTROPIUM BROMIDE
     Indication: ASTHMA
     Dosage: STRENGTH: 2.5 ?G
     Route: 055
     Dates: start: 20180102
  13. ONDANSETRON [Concomitant]
     Active Substance: ONDANSETRON
     Indication: NAUSEA
     Dosage: STRENGTH: 8 MG. DOSAGE: ONE (1) TABLET AS NEEDED MORNING AND EVENING
     Route: 048
     Dates: start: 201712
  14. SYMBICORT [Concomitant]
     Active Substance: BUDESONIDE\FORMOTEROL FUMARATE DIHYDRATE
     Indication: CHRONIC OBSTRUCTIVE PULMONARY DISEASE
     Dosage: STRENGTH:4.5 +160 MICROGRAMS/DOSAGE
     Route: 055
     Dates: start: 2015
  15. NEOTIGASON [Concomitant]
     Active Substance: ACITRETIN
     Indication: PSORIASIS
     Dosage: STRENGTH: 25 MG
     Route: 048
     Dates: start: 20180528, end: 20180609
  16. PREDNISOLONE. [Concomitant]
     Active Substance: PREDNISOLONE
     Indication: PNEUMONITIS
     Dosage: STRENGTH: 25 MG
     Route: 048
     Dates: start: 20180608
  17. GANGIDEN [Concomitant]
     Indication: CONSTIPATION
     Dosage: 2 DF, QD
     Route: 048
     Dates: start: 2016
  18. DAIVOBET [Concomitant]
     Active Substance: BETAMETHASONE DIPROPIONATE\CALCIPOTRIENE
     Indication: PSORIASIS
     Dosage: STRENGTH: 50+500 ?G/G
     Route: 003
     Dates: start: 2016

REACTIONS (25)
  - Endotracheal intubation [Recovered/Resolved]
  - Adrenocortical insufficiency acute [Fatal]
  - Abdominal pain [Unknown]
  - Bradycardia [Unknown]
  - Disseminated intravascular coagulation [Unknown]
  - Fatigue [Recovered/Resolved]
  - Intestinal ischaemia [Recovered/Resolved]
  - Hepatic failure [Fatal]
  - Pneumonitis [Unknown]
  - Sepsis [Fatal]
  - Colectomy [Unknown]
  - Coma [Recovered/Resolved]
  - Multiple organ dysfunction syndrome [Fatal]
  - Blood glucose increased [Unknown]
  - Psoriasis [Not Recovered/Not Resolved]
  - Dialysis [Unknown]
  - Laparotomy [Unknown]
  - Pallor [Not Recovered/Not Resolved]
  - Circulatory collapse [Fatal]
  - Metabolic acidosis [Fatal]
  - Ileostomy [Unknown]
  - Renal failure [Fatal]
  - Dyspnoea exertional [Unknown]
  - Abdominal distension [Unknown]
  - Haematemesis [Unknown]

NARRATIVE: CASE EVENT DATE: 201801
